FAERS Safety Report 12342739 (Version 1)
Quarter: 2016Q2

REPORT INFORMATION
  Report Type: Spontaneous
  Country: FI (occurrence: FI)
  Receive Date: 20160506
  Receipt Date: 20160506
  Transmission Date: 20160815
  Serious: Yes (Death, Other)
  Sender: FDA-Public Use
  Company Number: FI-PFIZER INC-2016203930

PATIENT
  Age: 71 Year
  Sex: Male

DRUGS (4)
  1. CEFOPERAZONE SODIUM [Suspect]
     Active Substance: CEFOPERAZONE SODIUM
     Indication: ABSCESS
     Dosage: 1 G, 3X/DAY
     Route: 042
  2. CEFOPERAZONE SODIUM [Suspect]
     Active Substance: CEFOPERAZONE SODIUM
     Dosage: 1 G, 3X/DAY
     Route: 042
  3. METRONIDAZOLE. [Concomitant]
     Active Substance: METRONIDAZOLE
     Indication: ABSCESS
     Dosage: 500 MG, 3X/DAY
  4. CEFOPERAZONE SODIUM [Suspect]
     Active Substance: CEFOPERAZONE SODIUM
     Dosage: 2 G, 3X/DAY
     Route: 042

REACTIONS (4)
  - Hypoprothrombinaemia [Unknown]
  - Sepsis [Fatal]
  - Haemorrhage [Unknown]
  - Drug ineffective [Fatal]
